FAERS Safety Report 18594137 (Version 1)
Quarter: 2020Q4

REPORT INFORMATION
  Report Type: Spontaneous
  Country: FR (occurrence: FR)
  Receive Date: 20201209
  Receipt Date: 20201209
  Transmission Date: 20210114
  Serious: Yes (Death, Hospitalization, Other)
  Sender: FDA-Public Use
  Company Number: FR-AUROBINDO-AUR-APL-2020-059962

PATIENT
  Age: 37 Year
  Sex: Female

DRUGS (3)
  1. LEVOFLOXACIN. [Suspect]
     Active Substance: LEVOFLOXACIN
     Indication: PNEUMONIA LEGIONELLA
     Dosage: 500 MILLIGRAM, TWO TIMES A DAY (1000 MG, DAILY)
     Route: 065
  2. AZITHROMYCIN ANHYDROUS. [Suspect]
     Active Substance: AZITHROMYCIN ANHYDROUS
     Indication: PNEUMONIA LEGIONELLA
     Dosage: 500 MILLIGRAM, ONCE A DAY
     Route: 065
  3. MOXIFLOXACIN. [Suspect]
     Active Substance: MOXIFLOXACIN
     Indication: PNEUMONIA LEGIONELLA
     Dosage: 400 MILLIGRAM, ONCE A DAY (1000 MILLIGRAM DAILY)
     Route: 065

REACTIONS (5)
  - Off label use [Fatal]
  - Stenotrophomonas infection [Fatal]
  - Pneumonia legionella [Fatal]
  - General physical health deterioration [Fatal]
  - Overdose [Fatal]
